FAERS Safety Report 15829201 (Version 1)
Quarter: 2019Q1

REPORT INFORMATION
  Report Type: Spontaneous
  Country: US (occurrence: US)
  Receive Date: 20190115
  Receipt Date: 20190115
  Transmission Date: 20190417
  Serious: No
  Sender: FDA-Public Use
  Company Number: US-ALLERGAN-1855253US

PATIENT
  Age: 58 Year
  Sex: Female

DRUGS (5)
  1. RESTASIS [Suspect]
     Active Substance: CYCLOSPORINE
     Indication: DRY EYE
     Dosage: 2 GTT, BID
     Route: 047
     Dates: start: 20181024, end: 20181126
  2. NUVIGIL [Concomitant]
     Active Substance: ARMODAFINIL
     Dosage: 150 MG, UNK
     Dates: start: 20181126
  3. NUVIGIL [Concomitant]
     Active Substance: ARMODAFINIL
     Dosage: 75 MG, UNK
     Dates: start: 20181120
  4. CLONAZEPAM. [Suspect]
     Active Substance: CLONAZEPAM
     Indication: RESTLESS LEGS SYNDROME
     Dosage: 5 MG, QD
     Route: 065
     Dates: start: 1998
  5. NUTRACEUTICAL OMEGA 3 [Concomitant]
     Indication: DRY EYE
     Dosage: 4 A DAY

REACTIONS (5)
  - Incorrect dose administered [Unknown]
  - Ocular discomfort [Unknown]
  - Product dose omission [Unknown]
  - Product container issue [Unknown]
  - Dry mouth [Unknown]

NARRATIVE: CASE EVENT DATE: 20181126
